FAERS Safety Report 5614711-3 (Version None)
Quarter: 2008Q1

REPORT INFORMATION
  Report Type: 
  Country: None (occurrence: None)
  Receive Date: 20080131
  Receipt Date: 20080116
  Transmission Date: 20080703
  Serious: Yes (Other)
  Sender: FDA-Public Use
  Company Number: 8029388

PATIENT
  Age: 72 Year
  Sex: Female
  Weight: 44.5 kg

DRUGS (2)
  1. PREDNISOLONE [Suspect]
  2. STEROIDS [Concomitant]

REACTIONS (6)
  - DEPRESSION [None]
  - DISTURBANCE IN ATTENTION [None]
  - EYE IRRITATION [None]
  - FATIGUE [None]
  - MUSCULAR WEAKNESS [None]
  - VISION BLURRED [None]
